FAERS Safety Report 15788954 (Version 1)
Quarter: 2019Q1

REPORT INFORMATION
  Report Type: Spontaneous
  Country: US (occurrence: US)
  Receive Date: 20190104
  Receipt Date: 20190104
  Transmission Date: 20190417
  Serious: No
  Sender: FDA-Public Use
  Company Number: US-TEVA-2018-US-988996

PATIENT
  Sex: Female

DRUGS (1)
  1. TRINESSA [Suspect]
     Active Substance: ETHINYL ESTRADIOL\NORGESTIMATE
     Dosage: NORGESTIMATE/ ETHINYL ESTRADIOL 0.180 MG/ 0.035 MG; 0.215 MG / 0.035 MG; 0.250 MG / 0.035 MG
     Route: 065
     Dates: start: 2014

REACTIONS (5)
  - Anger [Unknown]
  - Crying [Unknown]
  - Nausea [Unknown]
  - Product substitution issue [Unknown]
  - Product label issue [Unknown]

NARRATIVE: CASE EVENT DATE: 2018
